FAERS Safety Report 19986537 (Version 1)
Quarter: 2021Q4

REPORT INFORMATION
  Report Type: Spontaneous
  Country: KR (occurrence: KR)
  Receive Date: 20211022
  Receipt Date: 20211022
  Transmission Date: 20220303
  Serious: Yes (Other)
  Sender: FDA-Public Use
  Company Number: KR-LUPIN PHARMACEUTICALS INC.-2021-20244

PATIENT
  Sex: Male
  Weight: 2.15 kg

DRUGS (7)
  1. HYDROCORTISONE [Suspect]
     Active Substance: HYDROCORTISONE
     Indication: Hypotension
     Dosage: UNK
     Route: 065
  2. DOPAMINE [Suspect]
     Active Substance: DOPAMINE HYDROCHLORIDE
     Indication: Hypotension
     Dosage: UNK
     Route: 065
  3. DOBUTAMINE [Suspect]
     Active Substance: DOBUTAMINE HYDROCHLORIDE
     Indication: Hypotension
     Dosage: UNK
     Route: 065
  4. EPINEPHRINE [Suspect]
     Active Substance: EPINEPHRINE
     Indication: Hypotension
     Dosage: UNK
     Route: 065
  5. NOREPINEPHRINE [Suspect]
     Active Substance: NOREPINEPHRINE
     Indication: Hypotension
     Dosage: UNK
     Route: 065
  6. MILRINONE [Suspect]
     Active Substance: MILRINONE
     Indication: Newborn persistent pulmonary hypertension
     Dosage: UNK
     Route: 042
  7. NITROUS OXIDE [Suspect]
     Active Substance: NITROUS OXIDE
     Indication: Newborn persistent pulmonary hypertension
     Dosage: UNK
     Route: 055

REACTIONS (2)
  - Drug ineffective [Unknown]
  - Off label use [Unknown]
